FAERS Safety Report 9335228 (Version 2)
Quarter: 2013Q3

REPORT INFORMATION
  Report Type: Spontaneous
  Country: PT (occurrence: PT)
  Receive Date: 20130606
  Receipt Date: 20130722
  Transmission Date: 20140515
  Serious: Yes (Other)
  Sender: FDA-Public Use
  Company Number: PT-ASTELLAS-2013EU004672

PATIENT
  Age: 12 Year
  Sex: Male
  Weight: 25 kg

DRUGS (7)
  1. PROGRAF [Suspect]
     Indication: PROPHYLAXIS AGAINST GRAFT VERSUS HOST DISEASE
     Dosage: 0.03 MG/KG, CONTINUOUS
     Route: 042
     Dates: start: 20100414
  2. PROGRAF [Suspect]
     Indication: PROPHYLAXIS AGAINST GRAFT VERSUS HOST DISEASE
     Dosage: 0.12 MG/KG, UNKNOWN/D
     Route: 048
     Dates: end: 20100506
  3. MYCOPHENOLATE MOFETIL [Suspect]
     Indication: PROPHYLAXIS AGAINST GRAFT VERSUS HOST DISEASE
     Dosage: UNK
     Route: 042
  4. MYCOPHENOLATE MOFETIL [Suspect]
     Dosage: UNK
     Route: 048
  5. POSACONAZOLE [Concomitant]
     Indication: ANTIFUNGAL PROPHYLAXIS
     Dosage: 600 MG, UNKNOWN/D
     Route: 048
  6. CASPOFUNGIN [Concomitant]
     Dosage: UNK
     Route: 065
  7. CORTICOSTEROID NOS [Concomitant]
     Dosage: UNK
     Route: 065

REACTIONS (4)
  - Off label use [Unknown]
  - Alternaria infection [Recovered/Resolved]
  - Transplant failure [Recovered/Resolved]
  - Histiocytosis haematophagic [Recovered/Resolved]
